FAERS Safety Report 25239837 (Version 2)
Quarter: 2025Q2

REPORT INFORMATION
  Report Type: Spontaneous
  Country: IT (occurrence: IT)
  Receive Date: 20250425
  Receipt Date: 20250502
  Transmission Date: 20250717
  Serious: Yes (Death)
  Sender: MYLAN
  Company Number: None

PATIENT
  Age: 97 Year
  Sex: Female
  Weight: 55 kg

DRUGS (1)
  1. APIXABAN [Suspect]
     Active Substance: APIXABAN
     Indication: Atrial fibrillation
     Dosage: 2.5 MILLIGRAM, BID
     Dates: start: 20241220, end: 20250320

REACTIONS (1)
  - Ischaemic stroke [Fatal]

NARRATIVE: CASE EVENT DATE: 20250320
